FAERS Safety Report 16165578 (Version 1)
Quarter: 2019Q2

REPORT INFORMATION
  Report Type: Report from Study
  Country: US (occurrence: US)
  Receive Date: 20190405
  Receipt Date: 20190405
  Transmission Date: 20190711
  Serious: Yes (Death, Other)
  Sender: FDA-Public Use
  Company Number: US-REGENERON PHARMACEUTICALS, INC.-2019-24713

PATIENT

DRUGS (1)
  1. CEMIPLIMAB [Suspect]
     Active Substance: CEMIPLIMAB
     Indication: NEOPLASM MALIGNANT
     Dosage: 3 U, QM
     Route: 065
     Dates: start: 20181031, end: 20181121

REACTIONS (3)
  - Dysphagia [Unknown]
  - Pain in extremity [Unknown]
  - Death [Fatal]

NARRATIVE: CASE EVENT DATE: 20190104
